FAERS Safety Report 7489537-9 (Version None)
Quarter: 2011Q2

REPORT INFORMATION
  Report Type: 
  Country: None (occurrence: None)
  Receive Date: 20110519
  Receipt Date: 20110510
  Transmission Date: 20111010
  Serious: Yes (Hospitalization)
  Sender: FDA-Public Use
  Company Number: US-BRISTOL-MYERS SQUIBB COMPANY-15136328

PATIENT
  Age: 82 Year
  Sex: Male
  Weight: 75 kg

DRUGS (23)
  1. CETUXIMAB [Suspect]
     Indication: NON-SMALL CELL LUNG CANCER
     Dosage: ALSO TAKEN FROM 06APR10 TO 18MAY10,INTERRUPTED ON 18MAY10 NO OF INFUSION=7
     Route: 042
     Dates: start: 20100406, end: 20100608
  2. MIRALAX [Concomitant]
     Indication: CONSTIPATION
     Route: 048
     Dates: start: 20100427
  3. COMPAZINE [Concomitant]
     Indication: NAUSEA
     Route: 048
     Dates: start: 20100511
  4. POTASSIUM CHLORIDE [Concomitant]
     Indication: MEDICAL DIET
     Route: 048
     Dates: start: 20020101
  5. ASPIRIN [Concomitant]
     Indication: DERMATITIS
     Route: 065
  6. HYDROCHLOROTHIAZIDE [Concomitant]
     Indication: BLOOD PRESSURE INCREASED
     Dosage: 25MG TAB TAKE 1/2 TAB 1 IN 1 DAY.
     Route: 048
     Dates: start: 19980101
  7. METOPROLOL TARTRATE [Concomitant]
     Indication: BLOOD PRESSURE INCREASED
     Route: 048
     Dates: start: 19980101
  8. ASPIRIN [Concomitant]
     Indication: PROPHYLAXIS
     Route: 048
     Dates: start: 19980101
  9. HYCODAN [Concomitant]
     Indication: COUGH
     Dosage: DOSE=5MG/1.5 Q4-6 PRN
     Route: 048
     Dates: start: 20100420
  10. PEMETREXED DISODIUM [Suspect]
     Indication: NON-SMALL CELL LUNG CANCER
     Dosage: ALSO TAKEN FROM 07APR10 TO 18MAY10
     Route: 042
     Dates: start: 20100407, end: 20100608
  11. ZOFRAN [Concomitant]
     Indication: NAUSEA
     Dosage: ALSO GIVEN 32MG IV AS PREMEDICATION ON 7APR10
     Route: 048
     Dates: start: 20100511
  12. MEGACE [Concomitant]
     Indication: INCREASED APPETITE
     Dosage: DF=5ML,625MG/5ML
     Route: 048
     Dates: start: 20100311
  13. NORMAL SALINE [Concomitant]
     Indication: ASTHENIA
     Dosage: 11MAY10:1 LIT 25MAY10:500 UNKNOWN ONCE
     Route: 042
     Dates: start: 20100511
  14. CARBOPLATIN [Suspect]
     Indication: NON-SMALL CELL LUNG CANCER
     Dosage: NO O F INFUSION=3.ALSO TAKEN FROM 07APR10 TO 18MAY10
     Route: 042
     Dates: start: 20100407, end: 20100608
  15. HYDRALAZINE HCL [Concomitant]
     Indication: HYPERTENSION
     Route: 048
     Dates: start: 19980101
  16. SIMVASTATIN [Concomitant]
     Indication: HYPERCHOLESTEROLAEMIA
     Dosage: 160 MG TAB TAKEEN 1/2 TAB HS
     Route: 048
     Dates: start: 19990101
  17. VIBRAMYCIN [Concomitant]
     Indication: DERMATITIS
     Route: 048
     Dates: start: 20100420
  18. LOTRISONE [Concomitant]
     Indication: DERMATITIS
     Route: 061
     Dates: start: 20100511
  19. FOLIC ACID [Concomitant]
     Indication: PREMEDICATION
     Route: 048
     Dates: start: 20100323
  20. MAGNESIUM [Concomitant]
     Indication: MEDICAL DIET
     Dosage: 25MAY10:1GM IV 25MAY10:400MG ORAL 1 IN 1 D 1JUN10:800MG ORAL 2 IN 1 D
     Route: 042
     Dates: start: 20100525
  21. TERAZOSIN HCL [Concomitant]
     Indication: PROSTATE CANCER
     Route: 048
     Dates: start: 20020101
  22. VITAMIN B-12 [Concomitant]
     Dosage: INJECTION
     Dates: start: 20100323, end: 20100329
  23. DEXAMETHASONE [Concomitant]
     Indication: PREMEDICATION
     Route: 048
     Dates: start: 20100406

REACTIONS (1)
  - GASTROINTESTINAL HAEMORRHAGE [None]
